FAERS Safety Report 25268226 (Version 6)
Quarter: 2025Q3

REPORT INFORMATION
  Report Type: Spontaneous
  Country: US (occurrence: US)
  Receive Date: 20250505
  Receipt Date: 20250811
  Transmission Date: 20251020
  Serious: No
  Sender: PFIZER
  Company Number: US-PFIZER INC-202500090500

PATIENT
  Age: 13 Year
  Sex: Male
  Weight: 45.36 kg

DRUGS (3)
  1. GENOTROPIN [Suspect]
     Active Substance: SOMATROPIN
     Indication: Growth hormone deficiency
     Dosage: INJECTION ONCE A DAY
     Dates: start: 202501
  2. GENOTROPIN [Suspect]
     Active Substance: SOMATROPIN
     Dosage: 2 MG, DAILY
     Dates: start: 2025
  3. GENOTROPIN [Suspect]
     Active Substance: SOMATROPIN
     Dates: start: 2025

REACTIONS (5)
  - Device physical property issue [Unknown]
  - Device information output issue [Unknown]
  - Device mechanical issue [Unknown]
  - Device deployment issue [Unknown]
  - Drug dose omission by device [Unknown]

NARRATIVE: CASE EVENT DATE: 20250101
